FAERS Safety Report 4682098-9 (Version None)
Quarter: 2005Q2

REPORT INFORMATION
  Report Type: 
  Country: None (occurrence: None)
  Receive Date: 20050602
  Receipt Date: 20050525
  Transmission Date: 20051028
  Serious: Yes (Death, Life-Threatening, Hospitalization)
  Sender: FDA-Public Use
  Company Number: 05-0064PO

PATIENT
  Sex: Female

DRUGS (1)
  1. MEFENAMIC ACID [Suspect]
     Indication: ARTHRALGIA
     Dosage: 500 MG, PO
     Route: 048
     Dates: start: 20050403

REACTIONS (10)
  - ANGIONEUROTIC OEDEMA [None]
  - BRONCHITIS [None]
  - DYSPNOEA [None]
  - HYPOXIC ENCEPHALOPATHY [None]
  - MUSCLE SPASMS [None]
  - MYOCARDIAL INFARCTION [None]
  - PHARYNGOLARYNGEAL PAIN [None]
  - PRURITUS [None]
  - VENTRICULAR FIBRILLATION [None]
  - VENTRICULAR FLUTTER [None]
